FAERS Safety Report 8141132-4 (Version None)
Quarter: 2012Q1

REPORT INFORMATION
  Report Type: 
  Country: None (occurrence: None)
  Receive Date: 20120103
  Receipt Date: 20110912
  Transmission Date: 20120608
  Serious: No
  Sender: FDA-Public Use
  Company Number: AE-2011-001495

PATIENT
  Age: 60 Year
  Sex: Male
  Weight: 86.1834 kg

DRUGS (6)
  1. INCIVEK [Suspect]
     Dosage: 2250 MG (750 MG, 1 IN 8 HR), ORAL
     Route: 048
     Dates: start: 20110909
  2. PEGINTERFERON (PEGINTERFERON ALFA-2A) [Concomitant]
  3. IBUPROFEN (ADVIL) [Concomitant]
  4. NORVASC [Concomitant]
  5. RIBAVIRIN [Concomitant]
  6. FOLIC ACID [Concomitant]

REACTIONS (5)
  - HEADACHE [None]
  - ANORECTAL DISCOMFORT [None]
  - FATIGUE [None]
  - PAIN [None]
  - DIARRHOEA [None]
